FAERS Safety Report 14355854 (Version 1)
Quarter: 2018Q1

REPORT INFORMATION
  Report Type: Spontaneous
  Country: US (occurrence: US)
  Receive Date: 20180105
  Receipt Date: 20180105
  Transmission Date: 20180509
  Serious: Yes (Other)
  Sender: FDA-Public Use
  Company Number: US-PFIZER INC-2018001221

PATIENT
  Age: 54 Year
  Sex: Male

DRUGS (1)
  1. TIKOSYN [Suspect]
     Active Substance: DOFETILIDE
     Indication: HEART RATE ABNORMAL
     Dosage: 500 UG, 2X/DAY
     Route: 048
     Dates: start: 201610

REACTIONS (4)
  - Palpitations [Not Recovered/Not Resolved]
  - Amnesia [Unknown]
  - Atrial fibrillation [Unknown]
  - Chest pain [Not Recovered/Not Resolved]

NARRATIVE: CASE EVENT DATE: 201712
